FAERS Safety Report 25760138 (Version 2)
Quarter: 2025Q3

REPORT INFORMATION
  Report Type: Report from Study
  Country: US (occurrence: US)
  Receive Date: 20250904
  Receipt Date: 20250910
  Transmission Date: 20251021
  Serious: No
  Sender: SUNOVION
  Company Number: US-SUMITOMO PHARMA SWITZERLAND GMBH-2025SPA011150

PATIENT
  Age: 79 Year
  Sex: Male

DRUGS (8)
  1. ORGOVYX [Suspect]
     Active Substance: RELUGOLIX
     Indication: Prostate cancer
     Route: 048
  2. ORGOVYX [Suspect]
     Active Substance: RELUGOLIX
     Route: 048
  3. XTANDI [Concomitant]
     Active Substance: ENZALUTAMIDE
  4. METFORMIN [Concomitant]
     Active Substance: METFORMIN HYDROCHLORIDE
  5. GEMFIBROZIL [Concomitant]
     Active Substance: GEMFIBROZIL
  6. JARDIANCE [Concomitant]
     Active Substance: EMPAGLIFLOZIN
  7. TAMSULOSIN [Concomitant]
     Active Substance: TAMSULOSIN
  8. VITAMIN D [Concomitant]
     Active Substance: VITAMIN D NOS

REACTIONS (1)
  - Hot flush [Unknown]
